FAERS Safety Report 21501656 (Version 2)
Quarter: 2022Q4

REPORT INFORMATION
  Report Type: Other
  Country: US (occurrence: None)
  Receive Date: 20221025
  Receipt Date: 20221202
  Transmission Date: 20230113
  Serious: Yes (Other)
  Sender: FDA-Public Use
  Company Number: US-ROCHE-3205424

PATIENT
  Age: 44 Year
  Sex: Female
  Weight: 87.622 kg

DRUGS (1)
  1. RITUXAN [Suspect]
     Active Substance: RITUXIMAB
     Indication: Rheumatoid arthritis
     Dosage: 1000 MG DAY 1 AND DAY 15, THEN 1000 MG EVERY 6 MONTHS
     Route: 041

REACTIONS (12)
  - Syncope [Recovered/Resolved]
  - Deafness [Unknown]
  - Pain [Unknown]
  - Rhinalgia [Unknown]
  - Drug hypersensitivity [Unknown]
  - Butterfly rash [Unknown]
  - Photophobia [Unknown]
  - Plantar fasciitis [Unknown]
  - Constipation [Unknown]
  - Dyspepsia [Unknown]
  - Nausea [Unknown]
  - Insomnia [Unknown]
